FAERS Safety Report 16934142 (Version 2)
Quarter: 2019Q4

REPORT INFORMATION
  Report Type: Spontaneous
  Country: TW (occurrence: TW)
  Receive Date: 20191018
  Receipt Date: 20191022
  Transmission Date: 20200122
  Serious: Yes (Life-Threatening, Hospitalization, Other)
  Sender: FDA-Public Use
  Company Number: TW-ACCORD-157856

PATIENT
  Age: 41 Year
  Sex: Female

DRUGS (1)
  1. AMITRIPTYLINE [Suspect]
     Active Substance: AMITRIPTYLINE
     Indication: MAJOR DEPRESSION

REACTIONS (3)
  - Acute kidney injury [Recovered/Resolved]
  - Hepatitis acute [Recovered/Resolved]
  - Rhabdomyolysis [Recovered/Resolved]
